FAERS Safety Report 24167735 (Version 1)
Quarter: 2024Q3

REPORT INFORMATION
  Report Type: Spontaneous
  Country: ES (occurrence: ES)
  Receive Date: 20240802
  Receipt Date: 20240802
  Transmission Date: 20241017
  Serious: Yes (Life-Threatening, Hospitalization, Other)
  Sender: TEVA
  Company Number: None

PATIENT
  Age: 75 Year
  Sex: Female

DRUGS (8)
  1. LACOSAMIDE [Suspect]
     Active Substance: LACOSAMIDE
     Indication: Partial seizures
     Route: 048
     Dates: start: 20240703, end: 20240706
  2. ENOXAPARIN SODIUM [Concomitant]
     Active Substance: ENOXAPARIN SODIUM
     Indication: Cardiac ventricular thrombosis
     Dosage: INJECTION 0.6 ML PRE-FILLED SYRINGE
     Route: 058
     Dates: start: 20240611
  3. ESOMEPRAZOLE [Concomitant]
     Active Substance: ESOMEPRAZOLE
     Indication: Gastrointestinal disorder prophylaxis
     Route: 048
     Dates: start: 20240611
  4. INSULIN GLARGINE [Concomitant]
     Active Substance: INSULIN GLARGINE
     Indication: Diabetes mellitus
     Dosage: 100 UNITS/ML
     Route: 058
     Dates: start: 20240611, end: 20240708
  5. DEXCHLORPHENIRAMINE [Concomitant]
     Active Substance: DEXCHLORPHENIRAMINE
     Indication: Fungal skin infection
     Route: 048
     Dates: start: 20240626, end: 20240708
  6. TIGECYCLINE [Concomitant]
     Active Substance: TIGECYCLINE
     Indication: Bacteraemia
     Dosage: INJECTABLE INFUSION
     Route: 042
     Dates: start: 20240611, end: 20240709
  7. ONDANSETRON [Concomitant]
     Active Substance: ONDANSETRON
     Indication: Nausea
     Route: 042
     Dates: start: 20240628, end: 20240708
  8. BISOPROLOL [Concomitant]
     Active Substance: BISOPROLOL\BISOPROLOL FUMARATE
     Indication: Atrial flutter
     Route: 048
     Dates: start: 20240611, end: 20240707

REACTIONS (2)
  - Atrioventricular block complete [Recovered/Resolved]
  - Rash maculo-papular [Not Recovered/Not Resolved]

NARRATIVE: CASE EVENT DATE: 20240704
